FAERS Safety Report 8400642-2 (Version None)
Quarter: 2012Q2

REPORT INFORMATION
  Report Type: 
  Country: None (occurrence: None)
  Receive Date: 20120531
  Receipt Date: 20120531
  Transmission Date: 20120825
  Serious: Yes (Hospitalization, Other)
  Sender: FDA-Public Use
  Company Number: SE-ROCHE-1073793

PATIENT
  Age: 63 Year
  Sex: Female

DRUGS (3)
  1. KLOROKINFOSFAT [Concomitant]
  2. MABTHERA [Suspect]
     Indication: RHEUMATOID ARTHRITIS
     Route: 042
     Dates: start: 20100623, end: 20101202
  3. PREDNISOLONE [Concomitant]

REACTIONS (2)
  - SKIN ULCER [None]
  - MONONEURITIS [None]
